FAERS Safety Report 16754318 (Version 1)
Quarter: 2019Q3

REPORT INFORMATION
  Report Type: Spontaneous
  Country: US (occurrence: US)
  Receive Date: 20190829
  Receipt Date: 20190829
  Transmission Date: 20191005
  Serious: No
  Sender: FDA-Public Use
  Company Number: US-DUCHESNAY INC.-2073817

PATIENT
  Age: 69 Year
  Sex: Female

DRUGS (5)
  1. VITAMIN D [Concomitant]
     Active Substance: VITAMIN D NOS
  2. SULFASALAZINE. [Concomitant]
     Active Substance: SULFASALAZINE
  3. VITAMIN B12 [Concomitant]
     Active Substance: CYANOCOBALAMIN
  4. OSPHENA [Suspect]
     Active Substance: OSPEMIFENE
     Indication: BONE DENSITY ABNORMAL
     Dates: start: 20190720
  5. FOLIC ACID. [Concomitant]
     Active Substance: FOLIC ACID

REACTIONS (5)
  - Dehydration [Unknown]
  - Constipation [Not Recovered/Not Resolved]
  - Off label use [Unknown]
  - Diarrhoea [Not Recovered/Not Resolved]
  - Colitis [Not Recovered/Not Resolved]

NARRATIVE: CASE EVENT DATE: 201907
